FAERS Safety Report 23388825 (Version 3)
Quarter: 2024Q1

REPORT INFORMATION
  Report Type: Spontaneous
  Country: US (occurrence: US)
  Receive Date: 20240110
  Receipt Date: 20240208
  Transmission Date: 20240409
  Serious: No
  Sender: FDA-Public Use
  Company Number: US-VIIV HEALTHCARE LIMITED-US2024003354

PATIENT
  Sex: Male
  Weight: 82.5 kg

DRUGS (7)
  1. CABOTEGRAVIR [Suspect]
     Active Substance: CABOTEGRAVIR
     Indication: Prophylaxis against HIV infection
     Dosage: 600 MG, Q4W (SECOND DOSE 4 WEEKS AFTER FIRST DOSE AND EVERY 8 WEEKS THEREAFTER)
     Route: 030
     Dates: start: 20221014, end: 20230615
  2. CABOTEGRAVIR [Suspect]
     Active Substance: CABOTEGRAVIR
     Dosage: 600 MG, Q2M,  (SECOND DOSE 4 WEEKS AFTER FIRST DOSE AND EVERY 8 WEEKS THEREAFTER)
     Route: 030
  3. CABOTEGRAVIR [Suspect]
     Active Substance: CABOTEGRAVIR
  4. VIBRAMYCIN [Suspect]
     Active Substance: DOXYCYCLINE
     Indication: Product used for unknown indication
     Dosage: 1 DF, QD
     Route: 048
     Dates: start: 20221014, end: 20230707
  5. ZOLOFT [Suspect]
     Active Substance: SERTRALINE HYDROCHLORIDE
     Indication: Product used for unknown indication
     Dosage: 1 DF, QD
     Route: 048
     Dates: start: 20220822, end: 20230410
  6. DESCOVY [Concomitant]
     Active Substance: EMTRICITABINE\TENOFOVIR ALAFENAMIDE FUMARATE
     Indication: Product used for unknown indication
     Dosage: 1 DF, QD (120-15 MG)
     Route: 048
     Dates: start: 20221108, end: 20221201
  7. BICILLIN L A [Concomitant]
     Indication: Syphilis
     Dosage: UNK
     Dates: start: 20221019, end: 20221028

REACTIONS (2)
  - Injection site pain [Recovering/Resolving]
  - Herpes simplex [Unknown]
